FAERS Safety Report 8611919 (Version 6)
Quarter: 2013Q3

REPORT INFORMATION
  Report Type: Report from Study
  Country: MX (occurrence: MX)
  Receive Date: 20120613
  Receipt Date: 20130913
  Transmission Date: 20140515
  Serious: Yes (Hospitalization, Other)
  Sender: FDA-Public Use
  Company Number: PHHY2012MX049260

PATIENT
  Age: 37 Year
  Sex: Female

DRUGS (10)
  1. ONBREZ [Suspect]
     Indication: CHRONIC OBSTRUCTIVE PULMONARY DISEASE
     Dosage: 150 UG, QD
     Dates: start: 201201
  2. ONBREZ [Suspect]
     Indication: RESPIRATORY DISORDER
     Dosage: 300 UG, QD
     Dates: start: 201203, end: 201210
  3. ONBREZ [Suspect]
     Indication: OFF LABEL USE
     Dosage: 150 UG, QD
     Dates: start: 201210
  4. COMBIVENT [Concomitant]
     Indication: BRONCHOPULMONARY DISEASE
     Dosage: 3 DF, UNK
     Dates: start: 2007
  5. COMBIVENT [Concomitant]
     Indication: PHARYNGITIS
  6. LASIX [Concomitant]
     Indication: CARDIAC DISORDER
     Dosage: 5 MG, UNK
     Dates: start: 201208
  7. SPIRONOLACTONE [Concomitant]
     Indication: LUNG DISORDER
     Dosage: 25 MG, UNK
     Dates: start: 201209
  8. PROCORALAN [Concomitant]
     Indication: DIURETIC THERAPY
     Dosage: 1 DF, DAILY
     Dates: start: 200706
  9. KETOROLACO [Concomitant]
     Indication: PAIN
     Dosage: 100 MG, UNK
     Dates: start: 201209
  10. KETOROLACO [Concomitant]
     Indication: ABDOMINAL PAIN UPPER

REACTIONS (18)
  - Uterine neoplasm [Unknown]
  - Cyst [Unknown]
  - Depression [Not Recovered/Not Resolved]
  - Feeling of despair [Unknown]
  - Anxiety [Unknown]
  - Depressed mood [Unknown]
  - Stress [Not Recovered/Not Resolved]
  - Fatigue [Not Recovered/Not Resolved]
  - Influenza [Not Recovered/Not Resolved]
  - Gastrointestinal infection [Recovered/Resolved]
  - Vomiting [Recovered/Resolved]
  - Gastritis [Recovering/Resolving]
  - Dehydration [Recovered/Resolved]
  - Pharyngitis [Not Recovered/Not Resolved]
  - Increased upper airway secretion [Not Recovered/Not Resolved]
  - Oropharyngeal pain [Not Recovered/Not Resolved]
  - Dyspnoea [Not Recovered/Not Resolved]
  - Cough [Not Recovered/Not Resolved]
